FAERS Safety Report 23763653 (Version 1)
Quarter: 2024Q2

REPORT INFORMATION
  Report Type: Spontaneous
  Country: CH (occurrence: CH)
  Receive Date: 20240419
  Receipt Date: 20240419
  Transmission Date: 20240716
  Serious: Yes (Hospitalization, Disabling)
  Sender: FDA-Public Use
  Company Number: None

PATIENT
  Age: 50 Year
  Sex: Female
  Weight: 74.7 kg

DRUGS (2)
  1. DIENOGEST\ESTRADIOL VALERATE [Suspect]
     Active Substance: DIENOGEST\ESTRADIOL VALERATE
     Indication: Oral contraception
     Dosage: 1 DF, UNK
     Route: 048
  2. FERINJECT [Suspect]
     Active Substance: FERRIC CARBOXYMALTOSE
     Indication: Iron deficiency
     Dosage: 1 DF, UNK
     Route: 041
     Dates: start: 20240306, end: 20240306

REACTIONS (4)
  - Thalamic infarction [Not Recovered/Not Resolved]
  - Migraine [None]
  - Malaise [None]
  - Hemiparesis [None]

NARRATIVE: CASE EVENT DATE: 20240306
